FAERS Safety Report 25654866 (Version 1)
Quarter: 2025Q3

REPORT INFORMATION
  Report Type: Spontaneous
  Country: GB (occurrence: GB)
  Receive Date: 20250807
  Receipt Date: 20250807
  Transmission Date: 20251021
  Serious: Yes (Hospitalization, Other)
  Sender: RANBAXY
  Company Number: GB-SUN PHARMACEUTICAL INDUSTRIES INC-2025RR-521375

PATIENT
  Age: 41 Year
  Sex: Female

DRUGS (40)
  1. PANTOPRAZOLE [Suspect]
     Active Substance: PANTOPRAZOLE
     Indication: Product used for unknown indication
     Route: 065
  2. Sulfur/Hydrocortisone [Concomitant]
     Indication: Product used for unknown indication
  3. SALICYLIC ACID [Concomitant]
     Active Substance: SALICYLIC ACID
     Indication: Product used for unknown indication
  4. AMOXICILLIN [Concomitant]
     Active Substance: AMOXICILLIN
     Indication: Product used for unknown indication
  5. PACLITAXEL [Concomitant]
     Active Substance: PACLITAXEL
     Indication: Product used for unknown indication
  6. DIAZEPAM [Concomitant]
     Active Substance: DIAZEPAM
     Indication: Product used for unknown indication
  7. Paracetamol/Domperidone [Concomitant]
     Indication: Product used for unknown indication
     Route: 065
  8. Menthol/Hydrocortisone [Concomitant]
     Indication: Product used for unknown indication
     Route: 065
  9. Ichthammol + Clioquinol + Hydrocortisone [Concomitant]
     Indication: Product used for unknown indication
  10. Coal tar + Salicylic acid + Hydrocortisone [Concomitant]
     Indication: Product used for unknown indication
  11. Calcipotriol + Betamethasone [Concomitant]
     Indication: Product used for unknown indication
  12. Lidocaine + Hydrocortisone [Concomitant]
     Indication: Product used for unknown indication
  13. Clindamycin + Hydrocortisone [Concomitant]
     Indication: Product used for unknown indication
  14. Cinchocaine + Hydrocortisone [Concomitant]
     Indication: Product used for unknown indication
  15. Cascara + Senna [Concomitant]
     Indication: Product used for unknown indication
  16. SENNA [Concomitant]
     Active Substance: SENNOSIDES
     Indication: Product used for unknown indication
  17. CosmoCol Lemon and Lime Flavour oral powder [Concomitant]
     Indication: Product used for unknown indication
  18. ZOPICLONE [Concomitant]
     Active Substance: ZOPICLONE
     Indication: Product used for unknown indication
     Route: 065
  19. PROCHLORPERAZINE [Concomitant]
     Active Substance: PROCHLORPERAZINE
     Indication: Product used for unknown indication
     Route: 065
  20. OMEPRAZOLE [Concomitant]
     Active Substance: OMEPRAZOLE
     Indication: Product used for unknown indication
     Route: 065
  21. LOPERAMIDE [Concomitant]
     Active Substance: LOPERAMIDE
     Indication: Product used for unknown indication
     Route: 065
  22. adcal-D3 chewable tablets tutti frutti T [Concomitant]
     Indication: Product used for unknown indication
     Route: 065
  23. HYDROCORTISONE [Concomitant]
     Active Substance: HYDROCORTISONE
     Indication: Product used for unknown indication
     Route: 065
  24. PREGABALIN [Concomitant]
     Active Substance: PREGABALIN
     Indication: Product used for unknown indication
     Route: 065
  25. DOMPERIDONE [Concomitant]
     Active Substance: DOMPERIDONE
     Indication: Product used for unknown indication
  26. OXYCODONE [Concomitant]
     Active Substance: OXYCODONE
     Indication: Product used for unknown indication
  27. MORPHINE [Concomitant]
     Active Substance: MORPHINE
     Indication: Product used for unknown indication
  28. LORAZEPAM [Concomitant]
     Active Substance: LORAZEPAM
     Indication: Product used for unknown indication
  29. DENOSUMAB [Concomitant]
     Active Substance: DENOSUMAB
     Indication: Product used for unknown indication
  30. Oilatum Plus bath additive [Concomitant]
     Indication: Product used for unknown indication
  31. Betamethasone valerate 0.025% cream [Concomitant]
     Indication: Product used for unknown indication
  32. AVEENO [Concomitant]
     Active Substance: DIMETHICONE\HOMOSALATE\OCTINOXATE\OCTISALATE\TITANIUM DIOXIDE
     Indication: Product used for unknown indication
  33. Oxytetracycline + Hydrocortisone [Concomitant]
     Indication: Product used for unknown indication
  34. Econazole + Hydrocortisone [Concomitant]
     Indication: Product used for unknown indication
  35. Simeticone + Loperamide [Concomitant]
     Indication: Product used for unknown indication
  36. CELECOXIB [Concomitant]
     Active Substance: CELECOXIB
     Indication: Product used for unknown indication
  37. Ichthammol + Hydrocortisone [Concomitant]
     Indication: Product used for unknown indication
  38. CYCLIZINE [Concomitant]
     Active Substance: CYCLIZINE
     Indication: Product used for unknown indication
  39. OXYCODONE HYDROCHLORIDE [Concomitant]
     Active Substance: OXYCODONE HYDROCHLORIDE
     Indication: Product used for unknown indication
  40. DOCUSATE [Concomitant]
     Active Substance: DOCUSATE
     Indication: Product used for unknown indication

REACTIONS (2)
  - Erythema [Unknown]
  - Swelling face [Unknown]
